FAERS Safety Report 12503082 (Version 5)
Quarter: 2016Q4

REPORT INFORMATION
  Report Type: Report from Study
  Country: DE (occurrence: DE)
  Receive Date: 20160628
  Receipt Date: 20161110
  Transmission Date: 20170207
  Serious: Yes (Death, Life-Threatening, Hospitalization)
  Sender: FDA-Public Use
  Company Number: DE-ROCHE-1748073

PATIENT
  Age: 84 Year
  Sex: Male
  Weight: 84 kg

DRUGS (26)
  1. 5-FLUOROURACIL [Concomitant]
     Active Substance: FLUOROURACIL
     Dosage: 540-550 MG
     Route: 040
     Dates: start: 20160511, end: 20160608
  2. FOLINIC ACID [Concomitant]
     Active Substance: LEUCOVORIN
     Indication: COLORECTAL CANCER
     Route: 042
     Dates: start: 20150730, end: 20150730
  3. BEVACIZUMAB [Suspect]
     Active Substance: BEVACIZUMAB
     Indication: COLORECTAL CANCER METASTATIC
     Dosage: DATE OF LAST DOSE PRIOR TO SAE: 02/MAR/2016
     Route: 042
     Dates: start: 20150730
  4. BEVACIZUMAB [Suspect]
     Active Substance: BEVACIZUMAB
     Route: 042
     Dates: start: 20160608, end: 20160608
  5. 5-FLUOROURACIL [Concomitant]
     Active Substance: FLUOROURACIL
     Route: 041
     Dates: start: 20150730, end: 20150731
  6. 5-FLUOROURACIL [Concomitant]
     Active Substance: FLUOROURACIL
     Dosage: TWICE PER WEEK EVERY 2 WEEKS
     Route: 040
     Dates: start: 20150812, end: 20151105
  7. OXALIPLATIN. [Concomitant]
     Active Substance: OXALIPLATIN
     Route: 042
     Dates: start: 20160203, end: 20160302
  8. IRINOTECAN [Concomitant]
     Active Substance: IRINOTECAN
     Dosage: 540-550 MG
     Route: 042
     Dates: start: 20160515, end: 20160608
  9. 5-FLUOROURACIL [Concomitant]
     Active Substance: FLUOROURACIL
     Dosage: 550-640 MG, TWICE PER WEEK EVERY 2 WEEKS
     Route: 040
     Dates: start: 20150812, end: 20160428
  10. FOLINIC ACID [Concomitant]
     Active Substance: LEUCOVORIN
     Dosage: 280-320 MG, TWICE PER WEEK EVERY 2 WEEKS
     Route: 042
     Dates: start: 20150812, end: 20160428
  11. FOLINIC ACID [Concomitant]
     Active Substance: LEUCOVORIN
     Dosage: TWICE PER WEEK EVERY 2 WEEKS
     Route: 042
     Dates: start: 20150812, end: 20160331
  12. OXALIPLATIN. [Concomitant]
     Active Substance: OXALIPLATIN
     Indication: COLORECTAL CANCER
     Dosage: 120-140 MG
     Route: 042
     Dates: start: 20150730
  13. ASPIRIN. [Concomitant]
     Active Substance: ASPIRIN
     Route: 048
     Dates: start: 20160312
  14. ATORVASTATIN [Concomitant]
     Active Substance: ATORVASTATIN
     Indication: HYPERCHOLESTEROLAEMIA
     Route: 048
     Dates: start: 20160312
  15. 5-FLUOROURACIL [Concomitant]
     Active Substance: FLUOROURACIL
     Dosage: 3250-3300 MG
     Route: 041
     Dates: start: 20160511, end: 20160610
  16. FOLINIC ACID [Concomitant]
     Active Substance: LEUCOVORIN
     Dosage: TWICE PER WEEK EVERY 2 WEEKS
     Route: 042
     Dates: start: 20151118, end: 20160218
  17. 5-FLUOROURACIL [Concomitant]
     Active Substance: FLUOROURACIL
     Dosage: 950-960 MG, TWICE PER WEEK EVERY 2 WEEKS
     Route: 041
     Dates: start: 20151118, end: 20160219
  18. OXALIPLATIN. [Concomitant]
     Active Substance: OXALIPLATIN
     Route: 042
     Dates: start: 20151118, end: 20160120
  19. 5-FLUOROURACIL [Concomitant]
     Active Substance: FLUOROURACIL
     Indication: COLORECTAL CANCER
     Route: 040
     Dates: start: 20150730, end: 20150730
  20. 5-FLUOROURACIL [Concomitant]
     Active Substance: FLUOROURACIL
     Dosage: TWICE PER WEEK EVERY 2 WEEKS
     Route: 041
     Dates: start: 20150812, end: 20151106
  21. 5-FLUOROURACIL [Concomitant]
     Active Substance: FLUOROURACIL
     Dosage: TWICE PER WEEK EVERY 2 WEEKS
     Route: 041
     Dates: start: 20160302, end: 20160428
  22. 5-FLUOROURACIL [Concomitant]
     Active Substance: FLUOROURACIL
     Dosage: TWICE PER WEEK EVERY 2 WEEKS
     Route: 040
     Dates: start: 20151118, end: 20160121
  23. 5-FLUOROURACIL [Concomitant]
     Active Substance: FLUOROURACIL
     Dosage: TWICE PER WEEK EVERY 2 WEEKS
     Route: 040
     Dates: start: 20160302, end: 20160331
  24. BEVACIZUMAB [Suspect]
     Active Substance: BEVACIZUMAB
     Route: 042
     Dates: start: 20160302, end: 20160302
  25. FOLINIC ACID [Concomitant]
     Active Substance: LEUCOVORIN
     Dosage: 244-550 MG
     Route: 042
     Dates: start: 20160511, end: 20160608
  26. IRINOTECAN [Concomitant]
     Active Substance: IRINOTECAN
     Indication: COLORECTAL CANCER
     Route: 042
     Dates: start: 20160511, end: 20160511

REACTIONS (3)
  - Duodenal perforation [Fatal]
  - Cerebrovascular accident [Recovered/Resolved]
  - Epilepsy [Recovered/Resolved]

NARRATIVE: CASE EVENT DATE: 20160312
